FAERS Safety Report 10006433 (Version 1)
Quarter: 2014Q1

REPORT INFORMATION
  Report Type: Report from Study
  Country: US (occurrence: US)
  Receive Date: 20140313
  Receipt Date: 20140313
  Transmission Date: 20141002
  Serious: Yes (Hospitalization)
  Sender: FDA-Public Use
  Company Number: US-B.I. PHARMACEUTICALS,INC./RIDGEFIELD-2014-BI-10050BI

PATIENT
  Age: 27 Year
  Sex: Male

DRUGS (3)
  1. DABIGATRAN [Suspect]
     Indication: ATRIAL FIBRILLATION
     Dosage: 300 MG
     Route: 048
     Dates: start: 20130430
  2. ATENOLOL [Concomitant]
     Dosage: 25 MG
     Route: 048
  3. PROTONIX [Concomitant]
     Dosage: TOTAL DAILY DOSE: 1 TABLET
     Route: 048

REACTIONS (1)
  - Cystitis haemorrhagic [Unknown]
